FAERS Safety Report 10014038 (Version 4)
Quarter: 2014Q2

REPORT INFORMATION
  Report Type: Spontaneous
  Country: US (occurrence: US)
  Receive Date: 20140317
  Receipt Date: 20140529
  Transmission Date: 20141212
  Serious: Yes (Other)
  Sender: FDA-Public Use
  Company Number: PHHY2014US030812

PATIENT
  Sex: Female

DRUGS (19)
  1. BACLOFEN INTRATHECAL [Suspect]
     Indication: MUSCLE SPASTICITY
     Dosage: 659.9 UG/DAY
     Route: 037
     Dates: start: 2003
  2. BACLOFEN [Suspect]
     Dosage: 1 DF (ONE TABLET), QID
     Route: 048
  3. AMLODIPINE BESYLATE [Suspect]
     Dosage: 1 DF PER DAY AS DIRECTED
     Route: 048
  4. NITROFURANTOIN [Suspect]
     Dosage: 1 DF (ONE CAPSULE), PER DAY WITH MEAL
     Route: 048
  5. OMEPRAZOLE [Suspect]
     Dosage: 1 DF (1 CAPSULE), BID
     Route: 048
  6. CLONIDINE [Suspect]
     Dosage: UNK UKN, UNK
     Route: 037
  7. CLONIDINE [Suspect]
     Dosage: 48 UG/DAY
     Route: 037
  8. CLONIDINE [Suspect]
     Dosage: 65.99 UG/DAY
     Route: 037
     Dates: start: 201106
  9. SYNTHROID [Suspect]
     Dosage: 1 DF (ONE TABLET) PER DAY
     Route: 048
  10. MACRODANTIN [Suspect]
     Dosage: 1 DF, PRN
     Route: 048
  11. MULTI-VIT [Suspect]
     Dosage: 1 DF PER DAY
  12. CRANBERRY [Suspect]
     Dosage: UNK UKN, UNK
     Route: 048
  13. VITAMIN C [Suspect]
     Dosage: 1 DF, TID
     Route: 048
  14. HYDROCODONE/ACETAMINOPHEN          /01554201/ [Suspect]
     Dosage: UNK UKN, UNK
     Route: 048
  15. ACIDOPHILUS [Suspect]
     Dosage: 1 DF PER DAY
  16. MILK OF MAGNESIA [Suspect]
     Dosage: UNK UKN, UNK, USE AS DIRECTED
  17. VITAMIN D3 [Suspect]
     Dosage: 1 DF PER DAY
     Route: 048
  18. OXYBUTYNIN CHLORIDE [Suspect]
     Dosage: 1 DF, TID
     Route: 048
  19. TROSPIUM CHLORIDE [Suspect]
     Dosage: UNK UKN, UNK

REACTIONS (5)
  - Clonus [Unknown]
  - Hypertonia [Unknown]
  - Injection site pain [Unknown]
  - Muscular weakness [Unknown]
  - Muscle spasticity [Unknown]
